FAERS Safety Report 7060673-4 (Version None)
Quarter: 2010Q4

REPORT INFORMATION
  Report Type: 
  Country: None (occurrence: None)
  Receive Date: 20101025
  Receipt Date: 20101015
  Transmission Date: 20110411
  Serious: No
  Sender: FDA-Public Use
  Company Number: US-B.I. PHARMACEUTICALS,INC./RIDGEFIELD-2010-BP-11013BP

PATIENT
  Age: 72 Year
  Sex: Female
  Weight: 68.95 kg

DRUGS (5)
  1. SPIRIVA [Suspect]
     Indication: CHRONIC OBSTRUCTIVE PULMONARY DISEASE
     Dosage: 18 MCG
     Route: 055
     Dates: start: 20100909
  2. XOPENEX HFA [Concomitant]
     Route: 055
     Dates: start: 20100909
  3. PREDNISONE [Concomitant]
     Route: 048
     Dates: start: 20100909, end: 20100915
  4. ALBUTEROL [Concomitant]
     Route: 055
     Dates: start: 20100909
  5. ZITHROMAX [Concomitant]
     Dates: start: 20100909, end: 20100914

REACTIONS (2)
  - INCREASED UPPER AIRWAY SECRETION [None]
  - PRODUCTIVE COUGH [None]
